FAERS Safety Report 15820853 (Version 1)
Quarter: 2019Q1

REPORT INFORMATION
  Report Type: Spontaneous
  Country: AT (occurrence: AT)
  Receive Date: 20190114
  Receipt Date: 20190114
  Transmission Date: 20190417
  Serious: Yes (Other)
  Sender: FDA-Public Use
  Company Number: AT-TAKEDA-2018TUS036451

PATIENT
  Age: 48 Year
  Sex: Female
  Weight: 43 kg

DRUGS (3)
  1. VALETTE [Concomitant]
     Active Substance: DIENOGEST\ETHINYL ESTRADIOL
     Dosage: UNK UNK, QD
     Route: 048
  2. DHEA [Concomitant]
     Active Substance: PRASTERONE
     Dosage: 25 MG, UNK
     Route: 048
     Dates: start: 20181027
  3. ENTYVIO [Suspect]
     Active Substance: VEDOLIZUMAB
     Indication: CROHN^S DISEASE
     Dosage: 300 MG, UNK
     Route: 042
     Dates: start: 20181108, end: 20181211

REACTIONS (3)
  - Arthralgia [Recovering/Resolving]
  - Cough [Recovering/Resolving]
  - Myalgia [Recovering/Resolving]

NARRATIVE: CASE EVENT DATE: 20181211
